FAERS Safety Report 8599044-8 (Version None)
Quarter: 2012Q3

REPORT INFORMATION
  Report Type: 
  Country: None (occurrence: None)
  Receive Date: 20120806
  Receipt Date: 20120806
  Transmission Date: 20120928
  Serious: Yes (Other)
  Sender: FDA-Public Use
  Company Number: None

PATIENT
  Sex: Female

DRUGS (1)
  1. MICARDIS [Suspect]
     Indication: HYPERTENSION
     Dosage: ONCE A DAY PO
     Route: 048
     Dates: start: 20100801, end: 20110101

REACTIONS (2)
  - SWELLING FACE [None]
  - DIARRHOEA [None]
